FAERS Safety Report 6318547-X (Version None)
Quarter: 2009Q3

REPORT INFORMATION
  Report Type: 
  Country: None (occurrence: None)
  Receive Date: 20090821
  Receipt Date: 20090813
  Transmission Date: 20100115
  Serious: Yes (Hospitalization)
  Sender: FDA-Public Use
  Company Number: PHHO2009US10142

PATIENT
  Sex: Male
  Weight: 74.6 kg

DRUGS (4)
  1. RAD 666 RAD+TAB [Suspect]
     Indication: RENAL TRANSPLANT
     Dosage: 2.25 MG, BID
     Route: 048
     Dates: start: 20060309
  2. NEORAL [Concomitant]
     Indication: RENAL TRANSPLANT
     Dosage: 50 MG, BID
     Route: 048
     Dates: start: 20060309
  3. PREDNISOLONE [Concomitant]
     Indication: RENAL TRANSPLANT
     Dosage: 10 MG, QD
     Route: 048
     Dates: start: 20060309
  4. GLIPIZIDE [Concomitant]
     Indication: DIABETES MELLITUS
     Dosage: 2.5 MG, BID
     Route: 048

REACTIONS (9)
  - ASTHENIA [None]
  - DEEP VEIN THROMBOSIS [None]
  - DIARRHOEA [None]
  - LOBAR PNEUMONIA [None]
  - LUNG INFILTRATION [None]
  - NAUSEA [None]
  - PLEURAL EFFUSION [None]
  - RESPIRATORY DISORDER [None]
  - WHITE BLOOD CELL COUNT INCREASED [None]
